FAERS Safety Report 22706164 (Version 5)
Quarter: 2024Q1

REPORT INFORMATION
  Report Type: Report from Study
  Country: US (occurrence: US)
  Receive Date: 20230714
  Receipt Date: 20240116
  Transmission Date: 20240410
  Serious: Yes (Hospitalization)
  Sender: FDA-Public Use
  Company Number: US-MYLANLABS-2022M1117405

PATIENT
  Sex: Male
  Weight: 90.72 kg

DRUGS (2)
  1. GLATIRAMER ACETATE [Suspect]
     Active Substance: GLATIRAMER ACETATE
     Indication: Multiple sclerosis
     Dosage: 40 MILLIGRAM, 3XW
     Route: 058
  2. GLATIRAMER ACETATE [Suspect]
     Active Substance: GLATIRAMER ACETATE
     Dosage: 40 MILLIGRAM, 3XW
     Route: 058

REACTIONS (10)
  - Hypoaesthesia [Unknown]
  - Fluid retention [Unknown]
  - COVID-19 [Unknown]
  - Asthenia [Unknown]
  - Dizziness [Unknown]
  - Body temperature increased [Unknown]
  - Muscle tightness [Unknown]
  - Drug ineffective [Unknown]
  - Injection site pain [Unknown]
  - Injection site swelling [Unknown]
